FAERS Safety Report 21167994 (Version 2)
Quarter: 2022Q4

REPORT INFORMATION
  Report Type: Report from Study
  Country: CN (occurrence: CN)
  Receive Date: 20220803
  Receipt Date: 20221017
  Transmission Date: 20230113
  Serious: Yes (Life-Threatening, Other)
  Sender: FDA-Public Use
  Company Number: CN-SA-2022SA313009

PATIENT

DRUGS (2)
  1. OXALIPLATIN [Suspect]
     Active Substance: OXALIPLATIN
     Indication: Hepatocellular carcinoma
     Dosage: 100 MG/M2 CONTINUOUSLYOVER 4 HOURS (HEPATIC ARTERIAL INFUSION)
     Route: 013
  2. RALTITREXED [Suspect]
     Active Substance: RALTITREXED
     Indication: Hepatocellular carcinoma
     Dosage: 3 MG/M2, CONTINUOUS INFUSION OVER 1 HOUR (HEPATIC ARTERIAL INFUSION)
     Route: 013

REACTIONS (2)
  - Leukopenia [Unknown]
  - Anaemia [Unknown]
